FAERS Safety Report 6479962-7 (Version None)
Quarter: 2009Q4

REPORT INFORMATION
  Report Type: 
  Country: None (occurrence: None)
  Receive Date: 20091208
  Receipt Date: 20091120
  Transmission Date: 20100525
  Serious: Yes (Other)
  Sender: FDA-Public Use
  Company Number: US-SANOFI-AVENTIS-2009SA004195

PATIENT
  Sex: Male

DRUGS (2)
  1. AMBIEN [Suspect]
     Route: 048
     Dates: start: 20090101
  2. ALCOHOL [Suspect]
     Dosage: HAD A COUPLE OF DRINKS
     Route: 048
     Dates: start: 20090101

REACTIONS (4)
  - IMPAIRED DRIVING ABILITY [None]
  - ROAD TRAFFIC ACCIDENT [None]
  - SOMNAMBULISM [None]
  - WRONG DRUG ADMINISTERED [None]
